FAERS Safety Report 6745698-8 (Version None)
Quarter: 2010Q2

REPORT INFORMATION
  Report Type: 
  Country: None (occurrence: None)
  Receive Date: 20100528
  Receipt Date: 20100517
  Transmission Date: 20101027
  Serious: Yes (Hospitalization)
  Sender: FDA-Public Use
  Company Number: US-ASTRAZENECA-2010SE24023

PATIENT
  Sex: Female

DRUGS (12)
  1. SEROQUEL [Suspect]
     Indication: SLEEP DISORDER
     Dosage: 100 MG
     Route: 048
     Dates: start: 20041127
  2. LEXAPRO [Concomitant]
     Dates: start: 20040909
  3. ATIVAN [Concomitant]
     Dosage: 1 MG TID,2 MG TID,
     Dates: start: 20040909
  4. AMBIEN [Concomitant]
     Dates: start: 20050224
  5. KLONOPIN [Concomitant]
     Dosage: 1 MG TID,1 MG BID
     Dates: start: 20050803
  6. LITHIUM CITRATE [Concomitant]
     Dosage: 300 MG TO 600 MG
     Dates: start: 20070323
  7. EFFEXOR XR [Concomitant]
     Dosage: 75 MG TO 150 MG
     Dates: start: 20070323
  8. ABILIFY [Concomitant]
     Dates: start: 20090202
  9. IBUPROFEN [Concomitant]
     Dates: start: 20070323
  10. EVISTA [Concomitant]
     Dates: start: 20070323
  11. GEODON [Concomitant]
     Dosage: 80 MG TO 160 MG
     Dates: start: 20070323
  12. LIPITOR [Concomitant]
     Dates: start: 20070323

REACTIONS (4)
  - BIPOLAR I DISORDER [None]
  - DEPRESSION [None]
  - SUICIDAL IDEATION [None]
  - TYPE 2 DIABETES MELLITUS [None]
